FAERS Safety Report 10252438 (Version 1)
Quarter: 2014Q2

REPORT INFORMATION
  Report Type: Spontaneous
  Country: IT (occurrence: IT)
  Receive Date: 20140623
  Receipt Date: 20140623
  Transmission Date: 20141212
  Serious: Yes (Other)
  Sender: FDA-Public Use
  Company Number: IT-SA-2014SA077480

PATIENT
  Sex: Female

DRUGS (7)
  1. LANTUS [Suspect]
     Indication: DIABETES MELLITUS
     Route: 058
     Dates: start: 20130101, end: 20140108
  2. HUMALOG [Suspect]
     Indication: DIABETES MELLITUS
     Route: 058
     Dates: start: 20130101, end: 20140108
  3. BISOPROLOL FUMARATE [Concomitant]
     Route: 048
  4. CRESTOR [Concomitant]
     Dosage: STRENGTH: 10 MG
     Route: 048
  5. EUTIROX [Concomitant]
     Dosage: STRENGTH: 100 MCG
     Route: 048
  6. CARDIOASPIRIN [Concomitant]
     Dosage: STRENGTH: 100 MG
     Route: 048
  7. AMLODIPINE [Concomitant]

REACTIONS (2)
  - Joint injury [Recovering/Resolving]
  - Hypoglycaemia [Recovering/Resolving]
